FAERS Safety Report 11039465 (Version 2)
Quarter: 2015Q3

REPORT INFORMATION
  Report Type: Spontaneous
  Country: US (occurrence: US)
  Receive Date: 20150416
  Receipt Date: 20150831
  Transmission Date: 20151125
  Serious: No
  Sender: FDA-Public Use
  Company Number: US-009507513-1504USA016985

PATIENT
  Sex: Male

DRUGS (1)
  1. PROPECIA [Suspect]
     Active Substance: FINASTERIDE
     Indication: ANDROGENETIC ALOPECIA
     Dosage: 1 MG, UNK
     Route: 048
     Dates: start: 1997

REACTIONS (7)
  - Dizziness [Unknown]
  - Erectile dysfunction [Not Recovered/Not Resolved]
  - Infertility [Unknown]
  - Loss of consciousness [Unknown]
  - Sexual dysfunction [Not Recovered/Not Resolved]
  - Semen volume decreased [Unknown]
  - Libido decreased [Unknown]

NARRATIVE: CASE EVENT DATE: 1997
